FAERS Safety Report 6962719-8 (Version None)
Quarter: 2010Q3

REPORT INFORMATION
  Report Type: 
  Country: None (occurrence: None)
  Receive Date: 20100902
  Receipt Date: 20100826
  Transmission Date: 20110219
  Serious: Yes (Other)
  Sender: FDA-Public Use
  Company Number: US-JNJCH-2010019612

PATIENT
  Sex: Male

DRUGS (3)
  1. ROGAINE [Suspect]
     Indication: ALOPECIA
     Dosage: TEXT:UNSPECIFIED
     Route: 061
  2. DEXAMETHASONE [Suspect]
     Indication: STEROID THERAPY
     Dosage: TEXT:UNSPECIFIED
     Route: 065
  3. KEPPRA [Suspect]
     Indication: CONVULSION
     Dosage: TEXT:UNSPECIFIED
     Route: 065

REACTIONS (2)
  - CONDITION AGGRAVATED [None]
  - MENINGIOMA [None]
